FAERS Safety Report 17349257 (Version 1)
Quarter: 2020Q1

REPORT INFORMATION
  Report Type: Spontaneous
  Country: US (occurrence: US)
  Receive Date: 20200129
  Receipt Date: 20200129
  Transmission Date: 20200409
  Serious: Yes (Hospitalization)
  Sender: FDA-Public Use
  Company Number: None

PATIENT
  Age: 48 Year
  Sex: Female
  Weight: 69.75 kg

DRUGS (12)
  1. METFORMIN [Concomitant]
     Active Substance: METFORMIN HYDROCHLORIDE
  2. JARDIANCE [Concomitant]
     Active Substance: EMPAGLIFLOZIN
  3. BABY ASPIRIN [Concomitant]
     Active Substance: ASPIRIN
  4. PREGABALIN. [Suspect]
     Active Substance: PREGABALIN
     Indication: ABDOMINAL PAIN UPPER
     Dosage: ?          QUANTITY:1 CAPSULE(S);?
     Route: 048
     Dates: start: 20200107, end: 20200111
  5. SYNTHESIS [Concomitant]
  6. FISH OIL [Concomitant]
     Active Substance: FISH OIL
  7. MULTI VITAMIN [Concomitant]
     Active Substance: VITAMINS
  8. LANTUS [Concomitant]
     Active Substance: INSULIN GLARGINE
  9. ATORVASTATIN [Concomitant]
     Active Substance: ATORVASTATIN
  10. BUSPAR [Concomitant]
     Active Substance: BUSPIRONE HYDROCHLORIDE
  11. LOSARTAN. [Concomitant]
     Active Substance: LOSARTAN
  12. VITAMIN B [Concomitant]
     Active Substance: VITAMIN B

REACTIONS (13)
  - Constipation [None]
  - Vulvovaginal discomfort [None]
  - Lymphadenopathy [None]
  - Proctalgia [None]
  - Oral mucosal exfoliation [None]
  - Abdominal pain [None]
  - Back pain [None]
  - Anorectal discomfort [None]
  - Vulvovaginal pain [None]
  - Malaise [None]
  - Urinary incontinence [None]
  - Pyrexia [None]
  - Dysuria [None]

NARRATIVE: CASE EVENT DATE: 20200111
